FAERS Safety Report 7455458-0 (Version None)
Quarter: 2011Q2

REPORT INFORMATION
  Report Type: 
  Country: None (occurrence: None)
  Receive Date: 20110503
  Receipt Date: 20110428
  Transmission Date: 20111010
  Serious: Yes (Other)
  Sender: FDA-Public Use
  Company Number: BR-SANOFI-AVENTIS-2011SA026595

PATIENT
  Age: 44 Year
  Sex: Female
  Weight: 84 kg

DRUGS (7)
  1. METFORMIN HYDROCHLORIDE [Concomitant]
     Indication: TYPE 2 DIABETES MELLITUS
     Route: 048
     Dates: start: 20110301
  2. CLEXANE SYRINGES [Suspect]
     Route: 058
     Dates: start: 20110421
  3. CLEXANE SYRINGES [Suspect]
     Indication: PROPHYLAXIS OF ABORTION
     Route: 058
     Dates: start: 20110421
  4. FOLIC ACID [Concomitant]
     Indication: PREGNANCY
     Route: 048
     Dates: start: 20110301
  5. UTROGESTAN [Concomitant]
     Indication: PREGNANCY
     Route: 067
     Dates: start: 20110301
  6. BUFERIN [Concomitant]
     Indication: PREGNANCY
     Route: 048
     Dates: start: 20110301
  7. BUFERIN [Concomitant]
     Route: 048
     Dates: start: 20110301

REACTIONS (5)
  - DRUG EXPOSURE DURING PREGNANCY [None]
  - PLATELET COUNT DECREASED [None]
  - ABORTION SPONTANEOUS [None]
  - INJECTION SITE PAIN [None]
  - INJECTION SITE HAEMATOMA [None]
